FAERS Safety Report 4304987-7 (Version None)
Quarter: 2004Q1

REPORT INFORMATION
  Report Type: 
  Country: None (occurrence: None)
  Receive Date: 20040226
  Receipt Date: 20040121
  Transmission Date: 20041129
  Serious: No
  Sender: FDA-Public Use
  Company Number: US-GLAXOSMITHKLINE-A0495547A

PATIENT
  Sex: Female

DRUGS (2)
  1. WELLBUTRIN [Suspect]
     Indication: ANXIETY
     Dosage: 300MG PER DAY
     Route: 048
     Dates: start: 20030101
  2. MICROZIDE [Concomitant]
     Route: 048
     Dates: start: 20030101

REACTIONS (1)
  - BLOOD PRESSURE INCREASED [None]
